FAERS Safety Report 6696117-1 (Version None)
Quarter: 2010Q2

REPORT INFORMATION
  Report Type: 
  Country: None (occurrence: None)
  Receive Date: 20100426
  Receipt Date: 20100421
  Transmission Date: 20101027
  Serious: Yes (Hospitalization)
  Sender: FDA-Public Use
  Company Number: DE-SANOFI-AVENTIS-2010SA022361

PATIENT
  Age: 60 Year
  Sex: Female
  Weight: 110 kg

DRUGS (4)
  1. DOCETAXEL [Suspect]
     Indication: BREAST CANCER
     Route: 041
     Dates: start: 20100321, end: 20100321
  2. ZOFRAN [Concomitant]
     Indication: PROPHYLAXIS
     Route: 042
     Dates: start: 20100324, end: 20100324
  3. DEXAMETHASONE [Concomitant]
     Indication: PROPHYLAXIS
     Route: 042
     Dates: start: 20100324, end: 20100324
  4. FENISTIL [Concomitant]
     Indication: PROPHYLAXIS
     Route: 042
     Dates: start: 20100324, end: 20100324

REACTIONS (3)
  - BALANCE DISORDER [None]
  - SOMNOLENCE [None]
  - TRANCE [None]
